FAERS Safety Report 10676098 (Version 2)
Quarter: 2015Q1

REPORT INFORMATION
  Report Type: Report from Study
  Country: IT (occurrence: IT)
  Receive Date: 20141226
  Receipt Date: 20150116
  Transmission Date: 20150720
  Serious: Yes (Other)
  Sender: FDA-Public Use
  Company Number: IT-ROCHE-1513703

PATIENT

DRUGS (2)
  1. ALTEPLASE [Suspect]
     Active Substance: ALTEPLASE
     Indication: ISCHAEMIC STROKE
     Dosage: 0.9 MG/KG, (WITH AN UPPER LIMIT OF 90 MG), OF THE TOTAL DOSE, 10 % WAS ADMINISTERED AS A BOLUS
     Route: 040
  2. ALTEPLASE [Suspect]
     Active Substance: ALTEPLASE
     Indication: CAROTID ARTERY OCCLUSION
     Dosage: REMAINDER WAS ADMINISTERED OVER THE PERIOD OF 60 MINS.
     Route: 042

REACTIONS (1)
  - Vomiting [Unknown]
